FAERS Safety Report 7356020-0 (Version None)
Quarter: 2011Q1

REPORT INFORMATION
  Report Type: 
  Country: None (occurrence: None)
  Receive Date: 20110316
  Receipt Date: 20110308
  Transmission Date: 20110831
  Serious: Yes (Disabling)
  Sender: FDA-Public Use
  Company Number: GB-GENZYME-FLUD-1000858

PATIENT
  Sex: Male
  Weight: 5 kg

DRUGS (15)
  1. CLONAZEPAM [Concomitant]
     Indication: CONVULSION PROPHYLAXIS
     Dosage: 25 MCG/KG, BID
     Route: 048
     Dates: start: 20110113, end: 20110117
  2. ONDANSETRON [Concomitant]
     Indication: PRODUCT USED FOR UNKNOWN INDICATION
     Dosage: 1.5 MG, TID
     Route: 042
     Dates: start: 20110113
  3. ACYCLOVIR [Concomitant]
     Dosage: 50 MG, TID
     Route: 048
     Dates: start: 20110210
  4. TREOSULFAN [Suspect]
     Indication: BONE MARROW CONDITIONING REGIMEN
     Dosage: 12 G/M2, UNK
     Route: 042
     Dates: start: 20110114, end: 20110116
  5. ALLOPURINOL [Concomitant]
     Indication: PRODUCT USED FOR UNKNOWN INDICATION
     Dosage: 4 MG/KG, TID
     Route: 048
     Dates: start: 20110105, end: 20110109
  6. MYCOPHENOLATE MOFETIL [Concomitant]
     Indication: PRODUCT USED FOR UNKNOWN INDICATION
     Dosage: 75 MG, TID
     Route: 048
     Dates: start: 20110120
  7. CYCLOSPORINE [Concomitant]
     Indication: PRODUCT USED FOR UNKNOWN INDICATION
     Dosage: 10 MG, BID (TOTAL OF 5 DOSES)
     Route: 042
     Dates: start: 20110119, end: 20110121
  8. FLUDARA [Suspect]
     Indication: BONE MARROW CONDITIONING REGIMEN
     Dosage: 30 MG/M2, UNK
     Route: 042
     Dates: start: 20110114, end: 20110118
  9. KIOVIG [Concomitant]
     Indication: PRODUCT USED FOR UNKNOWN INDICATION
     Dosage: 2.5 G, Q3W
     Route: 042
     Dates: start: 20110105
  10. TACROLIMUS [Concomitant]
     Indication: PRODUCT USED FOR UNKNOWN INDICATION
     Dosage: 750 MCG, BID
     Route: 048
     Dates: start: 20110123
  11. CAMPATH [Suspect]
     Indication: BONE MARROW CONDITIONING REGIMEN
     Dosage: 0.2 MG/KG, UNK
     Route: 042
     Dates: start: 20110106, end: 20110108
  12. TREOSULFAN [Suspect]
     Indication: OFF LABEL USE
  13. COTRIM [Concomitant]
     Indication: PRODUCT USED FOR UNKNOWN INDICATION
     Dosage: 60 MG, BID (MON, WED, FRI)
     Route: 048
     Dates: start: 20100101
  14. AMBISOM [Concomitant]
     Indication: PRODUCT USED FOR UNKNOWN INDICATION
     Dosage: 5 MG, QD
     Route: 042
     Dates: start: 20110119
  15. ACYCLOVIR [Concomitant]
     Indication: PRODUCT USED FOR UNKNOWN INDICATION
     Dosage: 50 MG, TID
     Route: 042
     Dates: start: 20110119, end: 20110210

REACTIONS (3)
  - MOVEMENT DISORDER [None]
  - CONVULSION [None]
  - HYPERTONIA [None]
